FAERS Safety Report 10359685 (Version 1)
Quarter: 2014Q3

REPORT INFORMATION
  Report Type: Spontaneous
  Country: US (occurrence: None)
  Receive Date: 20140801
  Receipt Date: 20140801
  Transmission Date: 20150326
  Serious: No
  Sender: FDA-Public Use
  Company Number: None

PATIENT
  Age: 54 Year

DRUGS (1)
  1. APLISOL [Suspect]
     Active Substance: TUBERCULIN PURIFIED PROTEIN DERIVATIVE
     Dosage: LOT #?005770?INTRADARURAL FORMARM
     Dates: start: 20130304

REACTIONS (4)
  - Muscular weakness [None]
  - Myalgia [None]
  - Lymphadenopathy [None]
  - Bone pain [None]

NARRATIVE: CASE EVENT DATE: 20140305
